FAERS Safety Report 9558964 (Version 1)
Quarter: 2013Q3

REPORT INFORMATION
  Report Type: Spontaneous
  Country: CH (occurrence: CH)
  Receive Date: 20130927
  Receipt Date: 20130927
  Transmission Date: 20140515
  Serious: Yes (Other)
  Sender: FDA-Public Use
  Company Number: CH-BIOGENIDEC-2013BI090964

PATIENT
  Age: 26 Year
  Sex: Female

DRUGS (4)
  1. TYSABRI [Suspect]
     Indication: MULTIPLE SCLEROSIS
     Route: 042
     Dates: start: 201303, end: 201306
  2. FLUOXETINE SANDOZ 20 [Concomitant]
     Indication: DEPRESSION
     Route: 048
  3. ETHINYLESTRADIOL 2.7MG / ETONOGESTREL 11.7MG (NUVARING) [Concomitant]
     Indication: CONTRACEPTION
     Dosage: DOSE UNIT:1 UNKNOWN
     Route: 067
  4. OXYBUTYNIN (KENTARA) [Concomitant]
     Route: 062

REACTIONS (4)
  - Opportunistic infection [Recovered/Resolved]
  - Alopecia [Recovered/Resolved]
  - Fatigue [Recovered/Resolved]
  - Depression [Recovered/Resolved]
